FAERS Safety Report 15058614 (Version 3)
Quarter: 2019Q3

REPORT INFORMATION
  Report Type: Other
  Country: IT (occurrence: IT)
  Receive Date: 20180625
  Receipt Date: 20190911
  Transmission Date: 20191004
  Serious: Yes (Hospitalization, Other)
  Sender: FDA-Public Use
  Company Number: IT-MACLEODS PHARMACEUTICALS US LTD-MAC2018014350

PATIENT

DRUGS (10)
  1. OLMESARTAN AND HYDROCHLOROTHIAZIDE [Suspect]
     Active Substance: HYDROCHLOROTHIAZIDE\OLMESARTAN MEDOXOMIL
     Indication: PRODUCT USED FOR UNKNOWN INDICATION
     Dosage: 64 DOSAGE FORM, 1 TOTAL, FILM-COATED TABLET, ABUSE/MISUSE
     Route: 048
     Dates: start: 20180118, end: 20180118
  2. ELIQUIS [Suspect]
     Active Substance: APIXABAN
     Indication: PRODUCT USED FOR UNKNOWN INDICATION
     Dosage: 60 DOSAGE FORM, SINGLEL, ABUSE/IMPROPER USE
     Route: 048
     Dates: start: 20180118, end: 20180118
  3. AMIODARONE HYDROCHLORIDE. [Suspect]
     Active Substance: AMIODARONE HYDROCHLORIDE
     Indication: PRODUCT USED FOR UNKNOWN INDICATION
     Dosage: 20 DOSAGE FORM, 1 TOTAL, ABUSE/ MISUSE
     Route: 048
     Dates: start: 20180118, end: 20180118
  4. TAMSULOSIN HYDROCHLORIDE. [Concomitant]
     Active Substance: TAMSULOSIN HYDROCHLORIDE
     Indication: BENIGN PROSTATIC HYPERPLASIA
     Dosage: UNK
     Route: 048
  5. TRIAZOLAM. [Suspect]
     Active Substance: TRIAZOLAM
     Indication: PRODUCT USED FOR UNKNOWN INDICATION
     Dosage: 20 DOSAGE FORM, 1 TOTAL, TABLET, ABUSE / MISUSE
     Route: 048
     Dates: start: 20180118, end: 20180118
  6. OLMESARTAN AND HYDROCHLOROTHIAZIDE [Suspect]
     Active Substance: HYDROCHLOROTHIAZIDE\OLMESARTAN MEDOXOMIL
     Dosage: 64 DOSAGE FORM, 1 TOTAL OVERDOSE
     Route: 048
     Dates: start: 20180118, end: 20180118
  7. BISOPROLOL HEMIFUMARATE [Suspect]
     Active Substance: BISOPROLOL FUMARATE
     Indication: PRODUCT USED FOR UNKNOWN INDICATION
     Dosage: 28 DOSAGE FORM, 1 TOTAL, ABUSE / MISUSE
     Route: 048
     Dates: start: 20180118, end: 20180118
  8. AMLODIPINE BESYLATE. [Suspect]
     Active Substance: AMLODIPINE BESYLATE
     Indication: PRODUCT USED FOR UNKNOWN INDICATION
     Dosage: 14 DOSAGE FORM, 1 TOTAL, ABUSE / MISUSE
     Route: 048
     Dates: start: 20180118, end: 20180118
  9. ATORVASTATIN [Suspect]
     Active Substance: ATORVASTATIN
     Indication: PRODUCT USED FOR UNKNOWN INDICATION
     Dosage: 50 DOSAGE FORM, 1 TOTAL, ABUSE / MISUSE
     Route: 048
     Dates: start: 20180118, end: 20180118
  10. PALEXIA [Suspect]
     Active Substance: TAPENTADOL HYDROCHLORIDE
     Indication: PRODUCT USED FOR UNKNOWN INDICATION
     Dosage: 80 DOSAGE FORM, 1 TOTAL
     Route: 048
     Dates: start: 20180118, end: 20180118

REACTIONS (4)
  - Confusional state [Recovering/Resolving]
  - Intentional overdose [Unknown]
  - Drug abuse [Unknown]
  - Urinary incontinence [Recovering/Resolving]

NARRATIVE: CASE EVENT DATE: 20180118
